APPROVED DRUG PRODUCT: CEFUROXIME AXETIL
Active Ingredient: CEFUROXIME AXETIL
Strength: EQ 500MG BASE
Dosage Form/Route: TABLET;ORAL
Application: A065359 | Product #003 | TE Code: AB
Applicant: ANDA REPOSITORY LLC
Approved: Feb 15, 2008 | RLD: No | RS: No | Type: RX